FAERS Safety Report 4412273-X (Version None)
Quarter: 2004Q2

REPORT INFORMATION
  Report Type: 
  Country: None (occurrence: None)
  Receive Date: 20040630
  Receipt Date: 20040318
  Transmission Date: 20050107
  Serious: No
  Sender: FDA-Public Use
  Company Number: 04P-163-0254069-00

PATIENT
  Age: 46 Year
  Sex: Female
  Weight: 64.4108 kg

DRUGS (10)
  1. HUMIRA [Suspect]
     Indication: RHEUMATOID ARTHRITIS
     Dosage: 40 MG, 1 IN 2 WK, SUBCUTANEOUS
     Route: 058
     Dates: start: 20031030, end: 20040219
  2. HUMIRA [Suspect]
     Indication: RHEUMATOID ARTHRITIS
     Dosage: 40 MG, 1 IN 2 WK, SUBCUTANEOUS
     Route: 058
     Dates: start: 20040318
  3. PREDNISONE [Concomitant]
  4. HYDROCODONE [Concomitant]
  5. SERTRALINE HYDROCHLORIDE [Concomitant]
  6. DIAZEPAM [Concomitant]
  7. OMEPRAZOLE [Concomitant]
  8. METOPROLOL SUCCINATE [Concomitant]
  9. FOLIC ACID [Concomitant]
  10. CALCIUM [Concomitant]

REACTIONS (3)
  - ALLERGIC BRONCHITIS [None]
  - INJECTION SITE ERYTHEMA [None]
  - INJECTION SITE PRURITUS [None]
